FAERS Safety Report 20946188 (Version 1)
Quarter: 2022Q2

REPORT INFORMATION
  Report Type: Report from Study
  Country: US (occurrence: US)
  Receive Date: 20220610
  Receipt Date: 20220610
  Transmission Date: 20220721
  Serious: Yes (Hospitalization)
  Sender: FDA-Public Use
  Company Number: US-JNJFOC-20220605899

PATIENT
  Sex: Female

DRUGS (10)
  1. SPRAVATO [Suspect]
     Active Substance: ESKETAMINE
     Indication: Depression
     Dosage: 56 MG, ONE DOSE
     Dates: start: 20200504, end: 20200504
  2. SPRAVATO [Suspect]
     Active Substance: ESKETAMINE
     Dosage: 28 MG, 2 DOSES
     Dates: start: 20200507, end: 20200514
  3. SPRAVATO [Suspect]
     Active Substance: ESKETAMINE
     Dosage: 56 MG, 8 DOSES
     Dates: start: 20200521, end: 20200702
  4. SPRAVATO [Suspect]
     Active Substance: ESKETAMINE
     Dosage: 84 MG, 1 DOSE
     Dates: start: 20200709, end: 20200709
  5. SPRAVATO [Suspect]
     Active Substance: ESKETAMINE
     Dosage: 56 MG, 14 DOSES
     Dates: start: 20200730, end: 20201119
  6. SPRAVATO [Suspect]
     Active Substance: ESKETAMINE
     Dosage: 84 MG, 2 DOSES
     Dates: start: 20201123, end: 20201203
  7. SPRAVATO [Suspect]
     Active Substance: ESKETAMINE
     Dosage: 56 MG, 12 DOSES
     Dates: start: 20210111, end: 20210311
  8. SPRAVATO [Suspect]
     Active Substance: ESKETAMINE
     Dosage: 84 MG, 5 DOSES
     Dates: start: 20210315, end: 20210412
  9. SPRAVATO [Suspect]
     Active Substance: ESKETAMINE
     Dosage: 56 MG, 2 DOSES
     Dates: start: 20210517, end: 20210521
  10. SPRAVATO [Suspect]
     Active Substance: ESKETAMINE
     Dosage: 84 MG, 25 DOSES
     Dates: start: 20210527, end: 20220531

REACTIONS (1)
  - Hospitalisation [Unknown]
